FAERS Safety Report 10476334 (Version 1)
Quarter: 2014Q3

REPORT INFORMATION
  Report Type: Spontaneous
  Country: CH (occurrence: CH)
  Receive Date: 20140925
  Receipt Date: 20140925
  Transmission Date: 20150326
  Serious: Yes (Death, Hospitalization)
  Sender: FDA-Public Use
  Company Number: PHHY2014CH118070

PATIENT
  Age: 68 Year
  Sex: Female

DRUGS (1)
  1. SUMATRIPTAN [Suspect]
     Active Substance: SUMATRIPTAN
     Indication: MIGRAINE

REACTIONS (9)
  - Brain oedema [Unknown]
  - Cerebral vasoconstriction [Unknown]
  - Headache [Unknown]
  - Hemiparesis [Unknown]
  - Death [Fatal]
  - Ischaemic stroke [Unknown]
  - Loss of consciousness [Unknown]
  - Cerebellar hypoplasia [Unknown]
  - Cerebral ischaemia [Unknown]
